FAERS Safety Report 11313230 (Version 1)
Quarter: 2015Q3

REPORT INFORMATION
  Report Type: Spontaneous
  Country: US (occurrence: US)
  Receive Date: 20150727
  Receipt Date: 20150727
  Transmission Date: 20151125
  Serious: No
  Sender: FDA-Public Use
  Company Number: US-ABBVIE-15P-163-1333305-00

PATIENT
  Sex: Female

DRUGS (3)
  1. BENZOTROPINE [Concomitant]
     Active Substance: BENZTROPINE
     Indication: TREMOR
  2. SYNTHROID [Suspect]
     Active Substance: LEVOTHYROXINE SODIUM
     Indication: HYPOTHYROIDISM
     Route: 065
     Dates: start: 201410, end: 20141229
  3. FLUPHENAZINE [Concomitant]
     Active Substance: FLUPHENAZINE
     Indication: SCHIZOPHRENIA

REACTIONS (1)
  - Alopecia [Not Recovered/Not Resolved]
